FAERS Safety Report 9619556 (Version 3)
Quarter: 2014Q2

REPORT INFORMATION
  Report Type: Report from Study
  Country: AT (occurrence: AT)
  Receive Date: 20131014
  Receipt Date: 20140618
  Transmission Date: 20141212
  Serious: Yes (Hospitalization, Other)
  Sender: FDA-Public Use
  Company Number: AT-ABBVIE-11P-009-0709517-00

PATIENT
  Age: 40 Year
  Sex: Male
  Weight: 85 kg

DRUGS (6)
  1. HUMIRA [Suspect]
     Indication: CROHN^S DISEASE
     Dosage: ONCE
     Route: 058
     Dates: start: 20080806, end: 20080806
  2. HUMIRA [Suspect]
     Dosage: WEEK 2
     Route: 058
  3. HUMIRA [Suspect]
     Route: 058
     Dates: end: 20101015
  4. AZATHIOPRINE [Concomitant]
     Indication: CROHN^S DISEASE
     Dosage: 200 MG DAILY
     Dates: start: 2005
  5. BUDESONIDE [Concomitant]
     Indication: CROHN^S DISEASE
     Dates: start: 200807, end: 20080919
  6. PENTASA [Concomitant]
     Indication: CROHN^S DISEASE
     Dosage: 2X2
     Dates: start: 2005

REACTIONS (1)
  - Ileus [Recovered/Resolved]
